APPROVED DRUG PRODUCT: VERELAN
Active Ingredient: VERAPAMIL HYDROCHLORIDE
Strength: 360MG
Dosage Form/Route: CAPSULE, EXTENDED RELEASE;ORAL
Application: N019614 | Product #004
Applicant: AZURITY PHARMACEUTICALS INC
Approved: May 10, 1996 | RLD: Yes | RS: Yes | Type: RX